FAERS Safety Report 18724456 (Version 5)
Quarter: 2023Q4

REPORT INFORMATION
  Report Type: Other
  Country: US (occurrence: None)
  Receive Date: 20210111
  Receipt Date: 20231009
  Transmission Date: 20240110
  Serious: No
  Sender: FDA-Public Use
  Company Number: US-ROCHE-2746918

PATIENT
  Age: 77 Year
  Sex: Female

DRUGS (11)
  1. ACTEMRA [Suspect]
     Active Substance: TOCILIZUMAB
     Indication: Giant cell arteritis
     Dosage: INJECT 162MG SUBCUTANEOUSLY EVERY WEEK
     Route: 058
  2. ACTEMRA [Suspect]
     Active Substance: TOCILIZUMAB
  3. NORVASC [Concomitant]
     Active Substance: AMLODIPINE BESYLATE
     Dosage: TAKE 1 TABLET (10 MG TOTAL) BY MOUTH DAILY
     Route: 048
  4. ALPHAGAN P [Concomitant]
     Active Substance: BRIMONIDINE TARTRATE
     Dosage: INSTILL 1 DROP INTO EACH EYE TWICE DAILY DROPS
  5. PLAVIX [Concomitant]
     Active Substance: CLOPIDOGREL BISULFATE
     Dosage: TAKE 1 TABLET BY MOUTH ONCE DAILY
  6. ADVAIR DISKUS [Concomitant]
     Active Substance: FLUTICASONE PROPIONATE\SALMETEROL XINAFOATE
     Dosage: INHALE 1 DOSE BY MOUTH TWICE DAILY
  7. LOVAZA [Concomitant]
     Active Substance: OMEGA-3-ACID ETHYL ESTERS
     Dosage: TAKE 4 CAPSULES BY MOUTH ONCE DAILY
  8. PROTONIX [Concomitant]
     Active Substance: PANTOPRAZOLE SODIUM
     Dosage: TAKE 1 TABLET (20 MG TOTAL) BY MOUTH DAILY.
  9. DELTASONE [Concomitant]
     Active Substance: PREDNISONE
     Dosage: TAKE 1 TABLET (5 MG TOTAL) BY MOUTH DALLY
  10. CRESTOR [Concomitant]
     Active Substance: ROSUVASTATIN CALCIUM
     Dosage: TAKE 1 TABLET (20 MG TOTAL) BY MOUTH NIGHTLY
  11. ULTRAM [Concomitant]
     Active Substance: TRAMADOL HYDROCHLORIDE
     Dosage: TAKE 1 TABLET (50 MG TOTAL) BY MOUTH EVERY 4 HOURS AS NEEDED

REACTIONS (2)
  - Product temperature excursion issue [Unknown]
  - No adverse event [Unknown]
